FAERS Safety Report 10609992 (Version 5)
Quarter: 2016Q2

REPORT INFORMATION
  Report Type: Spontaneous
  Country: US (occurrence: US)
  Receive Date: 20141126
  Receipt Date: 20160502
  Transmission Date: 20160815
  Serious: No
  Sender: FDA-Public Use
  Company Number: US-PFIZER INC-2014319184

PATIENT
  Age: 30 Year
  Sex: Female
  Weight: 60 kg

DRUGS (13)
  1. SYNTHROID [Concomitant]
     Active Substance: LEVOTHYROXINE SODIUM
     Indication: PARATHYROID GLAND OPERATION
     Dosage: 0.15 MG, DAILY
     Route: 048
     Dates: start: 200701
  2. VITAMIN D [Concomitant]
     Active Substance: CHOLECALCIFEROL
     Dosage: 2000 IU, DAILY
     Route: 048
     Dates: start: 200404
  3. KEPPRA [Concomitant]
     Active Substance: LEVETIRACETAM
     Indication: SEIZURE
     Dosage: 2000 MG, 2X/DAY
     Dates: start: 201102
  4. LACOSAMIDE. [Concomitant]
     Active Substance: LACOSAMIDE
     Indication: SEIZURE
     Dosage: 275 MG, 2X/DAY
     Route: 048
     Dates: start: 200202
  5. RAPAMUNE [Suspect]
     Active Substance: SIROLIMUS
     Indication: RENAL TRANSPLANT
  6. DETROL LA [Concomitant]
     Active Substance: TOLTERODINE TARTRATE
     Indication: PROPHYLAXIS
     Dosage: 4 MG, DAILY
     Route: 048
     Dates: start: 20061011
  7. COUMADINE [Concomitant]
     Active Substance: WARFARIN SODIUM
     Dosage: 2.5 MG, IN THE EVENING
     Dates: start: 201004
  8. LEXAPRO [Concomitant]
     Active Substance: ESCITALOPRAM OXALATE
     Indication: ANTIDEPRESSANT THERAPY
     Dosage: 10 MG, DAILY
     Route: 048
     Dates: start: 200704
  9. CALCIUM [Concomitant]
     Active Substance: CALCIUM
     Dosage: 400 MG, 2X/DAY
     Route: 048
     Dates: start: 201102
  10. PREVACID [Concomitant]
     Active Substance: LANSOPRAZOLE
     Indication: ANTACID THERAPY
     Dosage: 30 MG, DAILY
     Route: 048
     Dates: start: 200704
  11. PREDNISONE. [Concomitant]
     Active Substance: PREDNISONE
     Indication: TRANSPLANT REJECTION
     Dosage: 5 MG, DAILY
     Route: 048
     Dates: start: 20061011
  12. RAPAMUNE [Suspect]
     Active Substance: SIROLIMUS
     Indication: PROPHYLAXIS AGAINST TRANSPLANT REJECTION
     Dosage: 1 MG, 3X/DAY
     Route: 048
     Dates: start: 20061011
  13. CYTOMEL [Concomitant]
     Active Substance: LIOTHYRONINE SODIUM
     Indication: THYROID DISORDER
     Dosage: 5 ?G, DAILY
     Dates: start: 200201

REACTIONS (3)
  - Gait disturbance [Recovered/Resolved]
  - Peripheral vascular disorder [Unknown]
  - Drug dose omission [Unknown]
